FAERS Safety Report 8016053-8 (Version None)
Quarter: 2011Q4

REPORT INFORMATION
  Report Type: 
  Country: None (occurrence: None)
  Receive Date: 20111228
  Receipt Date: 20111228
  Transmission Date: 20120403
  Serious: Yes (Hospitalization)
  Sender: FDA-Public Use
  Company Number: None

PATIENT
  Sex: Female
  Weight: 81 kg

DRUGS (3)
  1. LOTENSIN/HCTZ [Concomitant]
  2. CARBOPLATIN [Suspect]
     Dosage: 530 MG
     Dates: end: 20111206
  3. TAXOL [Suspect]
     Dosage: 320 MG
     Dates: end: 20111213

REACTIONS (6)
  - DIARRHOEA [None]
  - ATRIAL FIBRILLATION [None]
  - DEHYDRATION [None]
  - HYPOTENSION [None]
  - ASTHENIA [None]
  - NEUTROPENIA [None]
